FAERS Safety Report 19610198 (Version 1)
Quarter: 2021Q3

REPORT INFORMATION
  Report Type: Spontaneous
  Country: GB (occurrence: GB)
  Receive Date: 20210726
  Receipt Date: 20210726
  Transmission Date: 20211014
  Serious: Yes (Other)
  Sender: FDA-Public Use
  Company Number: GB-MYLANLABS-2021M1045375

PATIENT
  Age: 60 Year
  Sex: Female
  Weight: 122 kg

DRUGS (14)
  1. SALBUTAMOL SULFATE [Concomitant]
     Active Substance: ALBUTEROL SULFATE
     Indication: ILL-DEFINED DISORDER
     Dosage: UNK
  2. COLECALCIFEROL [Concomitant]
     Active Substance: CHOLECALCIFEROL
     Indication: ILL-DEFINED DISORDER
     Dosage: UNK
  3. PARACETAMOL [Concomitant]
     Active Substance: ACETAMINOPHEN
     Indication: ILL-DEFINED DISORDER
     Dosage: UNK
  4. SERTRALINE [Concomitant]
     Active Substance: SERTRALINE HYDROCHLORIDE
     Indication: ILL-DEFINED DISORDER
     Dosage: UNK
  5. FOSTAIR [Concomitant]
     Active Substance: BECLOMETHASONE\FORMOTEROL
     Indication: ILL-DEFINED DISORDER
     Dosage: UNK
  6. MST CONTINUS [Concomitant]
     Active Substance: MORPHINE SULFATE
     Indication: ILL-DEFINED DISORDER
     Dosage: UNK
  7. NORTRIPTYLINE [Concomitant]
     Active Substance: NORTRIPTYLINE
     Indication: ILL-DEFINED DISORDER
     Dosage: UNK
  8. ORAMORPH [Concomitant]
     Active Substance: MORPHINE SULFATE
     Indication: ILL-DEFINED DISORDER
     Dosage: UNK
  9. AZITHROMYCIN ANHYDROUS. [Suspect]
     Active Substance: AZITHROMYCIN ANHYDROUS
     Indication: ANTIBIOTIC PROPHYLAXIS
     Dosage: 250 MILLIGRAM, 3XW
     Route: 048
     Dates: start: 20210504, end: 20210702
  10. MACROGOL [Concomitant]
     Active Substance: POLYETHYLENE GLYCOLS
     Indication: ILL-DEFINED DISORDER
     Dosage: UNK
  11. GABAPENTIN. [Concomitant]
     Active Substance: GABAPENTIN
     Indication: ILL-DEFINED DISORDER
     Dosage: UNK
  12. IPRATROPIUM BROMIDE. [Concomitant]
     Active Substance: IPRATROPIUM BROMIDE
     Indication: ILL-DEFINED DISORDER
     Dosage: UNK
  13. LANSOPRAZOL [Concomitant]
     Active Substance: LANSOPRAZOLE
     Indication: GASTROOESOPHAGEAL REFLUX DISEASE
     Dosage: UNK
  14. LORAZEPAM. [Concomitant]
     Active Substance: LORAZEPAM
     Indication: ILL-DEFINED DISORDER
     Dosage: UNK

REACTIONS (2)
  - Palpitations [Recovered/Resolved]
  - Condition aggravated [Unknown]

NARRATIVE: CASE EVENT DATE: 2021
